FAERS Safety Report 8165909-4 (Version None)
Quarter: 2012Q1

REPORT INFORMATION
  Report Type: 
  Country: None (occurrence: None)
  Receive Date: 20120227
  Receipt Date: 20111116
  Transmission Date: 20120608
  Serious: No
  Sender: FDA-Public Use
  Company Number: US-MYLANLABS-2011S1022960

PATIENT
  Age: 19 Year
  Sex: Female
  Weight: 52.16 kg

DRUGS (2)
  1. AMNESTEEM [Suspect]
     Indication: ACNE CYSTIC
     Route: 048
     Dates: end: 20111103
  2. ORTHO-NOVUM 7/7/7-21 [Concomitant]
     Indication: CONTRACEPTION
     Route: 048

REACTIONS (2)
  - CONDITION AGGRAVATED [None]
  - EMOTIONAL DISORDER [None]
